FAERS Safety Report 7164001 (Version 4)
Quarter: 2015Q2

REPORT INFORMATION
  Report Type: Spontaneous
  Country: US (occurrence: US)
  Receive Date: 20091102
  Receipt Date: 20150524
  Transmission Date: 20150821
  Serious: No
  Sender: FDA-Public Use
  Company Number: US-JNJFOC-20091007389

PATIENT
  Sex: Female

DRUGS (2)
  1. DURAGESIC [Suspect]
     Active Substance: FENTANYL
     Indication: BACK PAIN
     Dosage: NDC# 50458-034-05
     Route: 062
     Dates: start: 2009
  2. DURAGESIC [Suspect]
     Active Substance: FENTANYL
     Indication: BACK PAIN
     Route: 062
     Dates: start: 200910

REACTIONS (3)
  - Product quality issue [Unknown]
  - Wrong technique in drug usage process [Unknown]
  - Inadequate analgesia [Recovered/Resolved]

NARRATIVE: CASE EVENT DATE: 2009
